FAERS Safety Report 8967411 (Version 2)
Quarter: 2014Q2

REPORT INFORMATION
  Report Type: Report from Study
  Country: BE (occurrence: BE)
  Receive Date: 20121214
  Receipt Date: 20131018
  Transmission Date: 20141212
  Serious: Yes (Hospitalization)
  Sender: FDA-Public Use
  Company Number: BE-PFIZER INC-2012310943

PATIENT
  Age: 35 Year
  Sex: Male
  Weight: 72.9 kg

DRUGS (37)
  1. METHYLPREDNISOLONE [Suspect]
     Indication: PROPHYLAXIS AGAINST TRANSPLANT REJECTION
     Dosage: 6 MG, 1X/DAY
     Route: 048
     Dates: start: 20041018
  2. METHYLPREDNISOLONE [Suspect]
     Dosage: 80 MG, 1X/DAY
     Route: 048
     Dates: start: 20050112
  3. METHYLPREDNISOLONE [Suspect]
     Dosage: 4 MG, 1X/DAY
     Route: 048
     Dates: start: 20050113
  4. METHYLPREDNISOLONE SODIUM SUCCINATE [Suspect]
     Indication: PROPHYLAXIS AGAINST TRANSPLANT REJECTION
     Dosage: 40 MG, 1X/DAY
     Route: 042
     Dates: start: 20041016
  5. METHYLPREDNISOLONE SODIUM SUCCINATE [Suspect]
     Dosage: 125 MG, 1X/DAY
     Route: 042
     Dates: start: 20050107
  6. METHYLPREDNISOLONE SODIUM SUCCINATE [Suspect]
     Dosage: 125 MG, 1X/DAY
     Route: 042
     Dates: start: 20050112
  7. DACLIZUMAB [Suspect]
     Indication: PROPHYLAXIS AGAINST TRANSPLANT REJECTION
     Dosage: 140 MG, SINGLE
     Route: 042
     Dates: start: 20041016, end: 20041016
  8. DACLIZUMAB [Suspect]
     Dosage: 70 MG, EVERY 2 WEEKS
     Route: 042
     Dates: start: 20041029, end: 20041213
  9. MYCOPHENOLATE MOFETIL [Suspect]
     Indication: PROPHYLAXIS AGAINST TRANSPLANT REJECTION
     Dosage: 1 G, 2X/DAY
     Route: 048
     Dates: start: 20041016, end: 20041016
  10. CICLOSPORIN [Suspect]
     Indication: PROPHYLAXIS AGAINST TRANSPLANT REJECTION
     Dosage: 112.5 MG, 2X/DAY
     Route: 048
     Dates: start: 20041016
  11. CICLOSPORIN [Suspect]
     Dosage: 125 MG, 2X/DAY
     Route: 048
     Dates: start: 20041105
  12. CICLOSPORIN [Suspect]
     Dosage: 64.5 MG, 2X/DAY
     Route: 048
     Dates: start: 20050114
  13. CICLOSPORIN [Suspect]
     Dosage: 125 MG, 1X/DAY
     Route: 048
     Dates: start: 20050205
  14. CICLOSPORIN [Suspect]
     Dosage: 110 MG, 2X/DAY
     Route: 048
     Dates: start: 20050307
  15. CICLOSPORIN [Suspect]
     Dosage: 87.5 MG, 2X/DAY
     Route: 048
     Dates: start: 20050510
  16. CICLOSPORIN [Suspect]
     Dosage: 75 MG, 2X/DAY
     Route: 048
     Dates: start: 20051018
  17. CICLOSPORIN [Suspect]
     Indication: PROPHYLAXIS AGAINST TRANSPLANT REJECTION
     Dosage: 134.5 MG, 2X/DAY
     Route: 048
     Dates: start: 20041030
  18. CICLOSPORIN [Suspect]
     Indication: PROPHYLAXIS AGAINST TRANSPLANT REJECTION
     Dosage: 100 MG, 2X/DAY
     Route: 048
     Dates: start: 20041228
  19. TERAZOSIN [Concomitant]
     Dosage: 2 G, 2X/DAY
     Route: 048
     Dates: start: 20041030
  20. TERAZOSIN [Concomitant]
     Dosage: 5 MG, 1X/DAY
     Route: 048
     Dates: start: 20041130
  21. TERAZOSIN [Concomitant]
     Dosage: 5 MG, 3X/DAY
     Route: 048
     Dates: start: 20041227
  22. TERAZOSIN [Concomitant]
     Dosage: 5 MG, 2X/DAY
     Route: 048
     Dates: start: 20050504
  23. VALGANCICLOVIR [Concomitant]
     Dosage: 450 MG, 1X/DAY
     Route: 048
     Dates: start: 20041020, end: 20050416
  24. AMLODIPINE BESILATE [Concomitant]
     Dosage: 5 MG, 1X/DAY
     Route: 048
     Dates: start: 20041018, end: 20041220
  25. AMLODIPINE BESILATE [Concomitant]
     Dosage: 5 MG, 2X/DAY
     Route: 048
     Dates: start: 20041227
  26. AMLODIPINE BESILATE [Concomitant]
     Dosage: 5 MG, 1X/DAY
     Route: 048
     Dates: start: 20050307, end: 20050316
  27. OMEPRAZOLE [Concomitant]
     Dosage: 20 MG, 1X/DAY
     Route: 048
     Dates: start: 20041124
  28. ALLOPURINOL [Concomitant]
     Dosage: 240 MG, 1X/DAY
     Route: 048
     Dates: start: 20041020, end: 20041116
  29. ALLOPURINOL [Concomitant]
     Dosage: 100 MG, 1X/DAY
     Route: 048
     Dates: start: 20050623
  30. AMLODIPINE [Concomitant]
     Dosage: 5 MG, 1X/DAY
     Route: 048
     Dates: start: 20050921
  31. BISOPROLOL [Concomitant]
     Dosage: 10 MG, 1X/DAY
     Route: 048
     Dates: start: 20041018
  32. CEFAZOLIN [Concomitant]
     Dosage: 2 G, 3X/DAY
     Route: 042
     Dates: start: 20041016, end: 20041017
  33. PERINDOPRIL [Concomitant]
     Dosage: UNK
     Dates: start: 20041220, end: 20050115
  34. PERINDOPRIL [Concomitant]
     Dosage: 2 MG, 1X/DAY
     Route: 048
     Dates: start: 20050204
  35. PIPERACILLIN [Concomitant]
     Dosage: 4 G, 3X/DAY
     Route: 042
     Dates: start: 20041024, end: 20041105
  36. PIPERACILLIN [Concomitant]
     Dosage: 2 MG, 4X/DAY
     Route: 042
     Dates: start: 20041110
  37. PIPERACILLIN [Concomitant]
     Dosage: 4 G, 1X/DAY
     Route: 042
     Dates: start: 20041116, end: 20041129

REACTIONS (3)
  - Cytomegalovirus infection [Recovered/Resolved]
  - Urinary tract infection pseudomonal [Recovered/Resolved]
  - Pseudomonas infection [Recovered/Resolved]
